FAERS Safety Report 25138621 (Version 1)
Quarter: 2025Q1

REPORT INFORMATION
  Report Type: Spontaneous
  Country: AU (occurrence: AU)
  Receive Date: 20250330
  Receipt Date: 20250330
  Transmission Date: 20250409
  Serious: Yes (Hospitalization, Other)
  Sender: ALEXION PHARMACEUTICALS
  Company Number: AU-ASTRAZENECA-202503OCE020861AU

PATIENT
  Age: 71 Year

DRUGS (2)
  1. NEXIUM [Suspect]
     Active Substance: ESOMEPRAZOLE MAGNESIUM
     Dosage: 40 MILLIGRAM, QD
     Route: 065
  2. FERROUS SULFATE [Suspect]
     Active Substance: FERROUS SULFATE
     Indication: Gastrooesophageal reflux disease
     Route: 065

REACTIONS (3)
  - Nephritis [Not Recovered/Not Resolved]
  - Epiretinal membrane [Not Recovered/Not Resolved]
  - Giant cell arteritis [Not Recovered/Not Resolved]
